FAERS Safety Report 17730705 (Version 2)
Quarter: 2020Q2

REPORT INFORMATION
  Report Type: Spontaneous
  Country: US (occurrence: US)
  Receive Date: 20200430
  Receipt Date: 20200501
  Transmission Date: 20200714
  Serious: Yes (Hospitalization, Other)
  Sender: FDA-Public Use
  Company Number: US-PFIZER INC-2020170626

PATIENT
  Age: 85 Year
  Sex: Male
  Weight: 68.95 kg

DRUGS (12)
  1. FLOMEX [Concomitant]
     Dosage: .4 MG (1 CAPSULE BY MOUTH 30 MINUTES AFTER MEAL)
     Route: 048
  2. LASIX [Concomitant]
     Active Substance: FUROSEMIDE
     Dosage: 20 MG, ALTERNATE DAY
     Route: 048
  3. LASIX [Concomitant]
     Active Substance: FUROSEMIDE
     Dosage: 40 MG, ALTERNATE DAY
     Route: 048
  4. VYNDAMAX [Suspect]
     Active Substance: TAFAMIDIS
     Indication: FAMILIAL AMYLOIDOSIS
  5. SIMVASTATIN. [Concomitant]
     Active Substance: SIMVASTATIN
     Indication: BLOOD CHOLESTEROL ABNORMAL
     Dosage: 20 MG, 1X/DAY
     Route: 048
  6. ZOLOFT [Concomitant]
     Active Substance: SERTRALINE HYDROCHLORIDE
     Indication: DEPRESSION
     Dosage: 50 MG, DAILY
     Route: 048
  7. RESTASIS [Concomitant]
     Active Substance: CYCLOSPORINE
     Indication: DRY EYE
     Dosage: UNK, 2X/DAY (SINGLE VIAL TWICE A DAY, AM AND PM)
  8. ELIQUIS [Concomitant]
     Active Substance: APIXABAN
     Indication: ANTICOAGULANT THERAPY
     Dosage: 5 MG, 2X/DAY
     Route: 048
  9. SYNTHROID [Concomitant]
     Active Substance: LEVOTHYROXINE SODIUM
     Indication: THYROID DISORDER
     Dosage: 0.075 MG, 1X/DAY
     Route: 048
  10. METOPROLOL. [Concomitant]
     Active Substance: METOPROLOL
     Indication: CARDIAC DISORDER
     Dosage: 50 MG, 2X/DAY
     Route: 048
  11. ESOMEPRAZOL [ESOMEPRAZOLE] [Concomitant]
     Active Substance: ESOMEPRAZOLE
     Indication: GASTROINTESTINAL DISORDER
     Dosage: 40 MG (1 CAPSULES THREE TIME A WEEK)
  12. VYNDAMAX [Suspect]
     Active Substance: TAFAMIDIS
     Indication: AMYLOIDOSIS
     Dosage: 61 MG (1 CAPSULE A DAY IN THE MORNING BY MOUTH)
     Route: 048
     Dates: start: 20200131

REACTIONS (3)
  - Fall [Unknown]
  - Subdural haemorrhage [Unknown]
  - Head injury [Unknown]

NARRATIVE: CASE EVENT DATE: 20200320
